FAERS Safety Report 20595281 (Version 2)
Quarter: 2022Q4

REPORT INFORMATION
  Report Type: Spontaneous
  Country: CA (occurrence: CA)
  Receive Date: 20220315
  Receipt Date: 20221228
  Transmission Date: 20230113
  Serious: Yes (Other)
  Sender: FDA-Public Use
  Company Number: CA-TAKEDA-2021TUS063498

PATIENT
  Age: 65 Year
  Sex: Female

DRUGS (44)
  1. LANTHANUM CARBONATE [Suspect]
     Active Substance: LANTHANUM CARBONATE
     Indication: Hyperphosphataemia
     Dosage: 750 MILLIGRAM, TID
     Route: 048
  2. LANTHANUM CARBONATE [Suspect]
     Active Substance: LANTHANUM CARBONATE
     Dosage: 750 MILLIGRAM
     Route: 048
     Dates: start: 20210506, end: 20210513
  3. ACETAMINOPHEN [Concomitant]
     Active Substance: ACETAMINOPHEN
     Dosage: 325 MILLIGRAM, QID
     Route: 048
     Dates: start: 20180316, end: 20210917
  4. ACETAMINOPHEN [Concomitant]
     Active Substance: ACETAMINOPHEN
     Dosage: 650 MILLIGRAM, QID
     Route: 048
     Dates: start: 20180316, end: 20210917
  5. ASPIRIN [Concomitant]
     Active Substance: ASPIRIN
     Dosage: 81 MILLIGRAM, QD
     Route: 048
     Dates: start: 20150915, end: 20210917
  6. AMOXICILLIN [Concomitant]
     Active Substance: AMOXICILLIN
     Dosage: 500 MILLIGRAM, BID
     Route: 048
     Dates: start: 20210507, end: 20211107
  7. ASCORBIC ACID [Concomitant]
     Active Substance: ASCORBIC ACID
     Dosage: UNK UNK, QD
     Route: 048
     Dates: start: 20210317, end: 20210917
  8. BISOPROLOL [Concomitant]
     Active Substance: BISOPROLOL
     Dosage: 7.5 MILLIGRAM, BID
     Route: 048
     Dates: start: 20210618, end: 20210917
  9. DILAUDID [Concomitant]
     Active Substance: HYDROMORPHONE HYDROCHLORIDE
     Route: 065
  10. FERROUS GLUCONATE [Concomitant]
     Active Substance: FERROUS GLUCONATE
     Route: 065
  11. FOSRENOL [Concomitant]
     Active Substance: LANTHANUM CARBONATE
     Route: 065
  12. GRAVOL [Concomitant]
     Active Substance: DIMENHYDRINATE
     Route: 065
  13. HYDROXYZINE [Concomitant]
     Active Substance: HYDROXYZINE HYDROCHLORIDE
     Dosage: 20 MILLIGRAM
     Route: 048
  14. LEVEMIR [Concomitant]
     Active Substance: INSULIN DETEMIR
     Route: 065
  15. LIPITOR [Concomitant]
     Active Substance: ATORVASTATIN CALCIUM
     Route: 065
  16. NITROGLYCERIN [Concomitant]
     Active Substance: NITROGLYCERIN
     Dosage: 1 DOSAGE FORM, QD
     Route: 048
     Dates: start: 20200604, end: 20210917
  17. NITROGLYCERIN [Concomitant]
     Active Substance: NITROGLYCERIN
     Dosage: 0.4 MILLIGRAM
     Route: 060
     Dates: start: 20210725, end: 20210917
  18. NORVASC [Concomitant]
     Active Substance: AMLODIPINE BESYLATE
     Route: 065
  19. NOVORAPID [Concomitant]
     Active Substance: INSULIN ASPART
     Route: 065
  20. SENOKOT [Concomitant]
     Active Substance: SENNOSIDES
     Route: 065
  21. SENSIPAR [Concomitant]
     Active Substance: CINACALCET HYDROCHLORIDE
     Route: 065
  22. CITRIC ACID MONOHYDRATE\SODIUM CITRATE [Concomitant]
     Active Substance: CITRIC ACID MONOHYDRATE\SODIUM CITRATE
     Dosage: 2.5 MILLILITER
     Route: 065
  23. TUMS ULTRA [Concomitant]
     Active Substance: CALCIUM CARBONATE
     Route: 065
  24. HERBALS\TURMERIC [Concomitant]
     Active Substance: HERBALS\TURMERIC
     Dosage: 1 DOSAGE FORM
     Route: 065
     Dates: start: 20210317, end: 20210917
  25. VITAMIN B COMPLEX [Concomitant]
     Active Substance: CYANOCOBALAMIN\DEXPANTHENOL\NIACINAMIDE\PYRIDOXINE HYDROCHLORIDE\RIBOFLAVIN 5^-PHOSPHATE SODIUM\THIA
     Dosage: 1 DOSAGE FORM, QID
     Route: 065
     Dates: start: 20210317, end: 20210917
  26. WARFARIN [Concomitant]
     Active Substance: WARFARIN
     Dosage: 2.5 MILLIGRAM, QD
     Route: 048
     Dates: start: 20210628, end: 20211228
  27. AMLODIPINE BESYLATE [Concomitant]
     Active Substance: AMLODIPINE BESYLATE
     Dosage: 10 MILLIGRAM, QD
     Route: 048
     Dates: start: 20210724, end: 20210917
  28. CALCIUM CARBONATE [Concomitant]
     Active Substance: CALCIUM CARBONATE
     Dosage: 2000 MILLIGRAM, TID
     Route: 048
     Dates: start: 20200606, end: 20210917
  29. VITAMIN C [Concomitant]
     Active Substance: ASCORBIC ACID
     Route: 065
  30. ATORVASTATIN CALCIUM [Concomitant]
     Active Substance: ATORVASTATIN CALCIUM
     Dosage: 40 MILLIGRAM
     Route: 048
     Dates: start: 20210317, end: 20210917
  31. CANDESARTAN [Concomitant]
     Active Substance: CANDESARTAN
     Dosage: 8 MILLIGRAM
     Route: 048
     Dates: start: 20210614, end: 20211214
  32. CINACALCET [Concomitant]
     Active Substance: CINACALCET
     Dosage: 30 MILLIGRAM, BID
     Route: 048
     Dates: start: 20210414, end: 20211014
  33. INSULIN NOS [Concomitant]
     Active Substance: INSULIN NOS
     Dosage: 1 DOSAGE FORM, QD
     Route: 048
     Dates: start: 20210604, end: 20210917
  34. SENNOSIDES [Concomitant]
     Active Substance: SENNOSIDES
     Dosage: 8.6 MILLIGRAM
     Route: 048
     Dates: start: 20191218, end: 20210917
  35. ALTEPLASE [Concomitant]
     Active Substance: ALTEPLASE
     Dosage: 2 MILLILITER
     Route: 042
  36. DIMENHYDRINATE [Concomitant]
     Active Substance: DIMENHYDRINATE
     Dosage: 25 MILLIGRAM
     Route: 048
     Dates: start: 20210416, end: 20211016
  37. DIMENHYDRINATE [Concomitant]
     Active Substance: DIMENHYDRINATE
     Dosage: 50 MILLIGRAM
     Route: 048
     Dates: start: 20210416, end: 20211016
  38. HYDRALAZINE [Concomitant]
     Active Substance: HYDRALAZINE HYDROCHLORIDE
     Dosage: 20 MILLIGRAM
     Route: 048
     Dates: start: 20180214, end: 20210917
  39. HYDROXYZINE HYDROCHLORIDE [Concomitant]
     Active Substance: HYDROXYZINE HYDROCHLORIDE
     Dosage: 25 MILLIGRAM, QD
     Route: 048
     Dates: start: 20180214, end: 20210917
  40. Iron complex [Concomitant]
     Dosage: 125 MILLIGRAM
     Route: 042
     Dates: start: 20210604, end: 20211204
  41. SODIUM CITRATE [Concomitant]
     Active Substance: SODIUM CITRATE
     Dosage: 2.5 MILLILITER
     Route: 042
     Dates: start: 20191212, end: 20210917
  42. HYDROMORPHONE HCL [Concomitant]
     Active Substance: HYDROMORPHONE HYDROCHLORIDE
     Dosage: 0.5 MILLIGRAM
     Route: 048
     Dates: start: 20191220, end: 20210917
  43. SODIUM POLYSTYRENE SULFONATE [Concomitant]
     Active Substance: SODIUM POLYSTYRENE SULFONATE
     Dosage: 30 GRAM, QD
     Route: 048
     Dates: start: 20200928, end: 20210320
  44. ATACAND [Concomitant]
     Active Substance: CANDESARTAN CILEXETIL
     Route: 065

REACTIONS (4)
  - Renal failure [Recovered/Resolved]
  - Nausea [Recovered/Resolved]
  - Vomiting [Recovered/Resolved]
  - Product substitution issue [Recovered/Resolved]
